FAERS Safety Report 4897386-0 (Version None)
Quarter: 2006Q1

REPORT INFORMATION
  Report Type: 
  Country: None (occurrence: None)
  Receive Date: 20060130
  Receipt Date: 20060130
  Transmission Date: 20060701
  Serious: Yes (Hospitalization)
  Sender: FDA-Public Use
  Company Number: None

PATIENT
  Sex: Female
  Weight: 79.3795 kg

DRUGS (1)
  1. KETEK [Suspect]
     Indication: SINUSITIS

REACTIONS (6)
  - CARDIAC TAMPONADE [None]
  - COXSACKIE VIRAL INFECTION [None]
  - GENERALISED OEDEMA [None]
  - LIVER FUNCTION TEST ABNORMAL [None]
  - PERICARDIAL HAEMORRHAGE [None]
  - PERICARDITIS [None]
